FAERS Safety Report 21041402 (Version 7)
Quarter: 2023Q2

REPORT INFORMATION
  Report Type: Other
  Country: CA (occurrence: None)
  Receive Date: 20220705
  Receipt Date: 20230505
  Transmission Date: 20230722
  Serious: Yes (Other)
  Sender: FDA-Public Use
  Company Number: CA-ROCHE-2338523

PATIENT
  Age: 42 Year
  Sex: Female

DRUGS (28)
  1. OCREVUS [Suspect]
     Active Substance: OCRELIZUMAB
     Indication: Relapsing-remitting multiple sclerosis
     Dosage: 300 MG AT DAY 0 AND 14, THEN 600 MG EVERY 6 MONTH
     Route: 042
     Dates: start: 20190611
  2. OCREVUS [Suspect]
     Active Substance: OCRELIZUMAB
     Dosage: PERFUSION NO: 4
     Route: 042
     Dates: start: 20200707
  3. OCREVUS [Suspect]
     Active Substance: OCRELIZUMAB
     Dosage: INFUSION NO: 5?CONCENTRATE FOR INTRAVENOUS INFUSION
     Route: 042
     Dates: start: 20210120
  4. OCREVUS [Suspect]
     Active Substance: OCRELIZUMAB
     Dosage: INFUSION NO: 6?NEXT ON 25/FEB/2022 600 MG
     Route: 042
     Dates: start: 20210818
  5. PAXLOVID [Suspect]
     Active Substance: NIRMATRELVIR\RITONAVIR
     Indication: COVID-19
     Route: 065
  6. BACLOFEN [Suspect]
     Active Substance: BACLOFEN
     Indication: Product used for unknown indication
     Route: 065
  7. ACETAMINOPHEN [Concomitant]
     Active Substance: ACETAMINOPHEN
     Indication: Premedication
     Route: 048
  8. BENADRYL [Concomitant]
     Active Substance: DIPHENHYDRAMINE HYDROCHLORIDE
     Indication: Premedication
     Route: 048
  9. METHYLPREDNISOLONE [Concomitant]
     Active Substance: METHYLPREDNISOLONE
     Indication: Premedication
     Route: 042
  10. METHYLPREDNISOLONE [Concomitant]
     Active Substance: METHYLPREDNISOLONE
     Route: 042
     Dates: start: 20210120
  11. CETIRIZINE HYDROCHLORIDE [Concomitant]
     Active Substance: CETIRIZINE HYDROCHLORIDE
     Indication: Premedication
     Route: 048
  12. CETIRIZINE HYDROCHLORIDE [Concomitant]
     Active Substance: CETIRIZINE HYDROCHLORIDE
     Indication: Hypersensitivity
  13. ZANTAC [Concomitant]
     Active Substance: RANITIDINE HYDROCHLORIDE
     Indication: Premedication
     Route: 048
  14. METFORMIN [Concomitant]
     Active Substance: METFORMIN HYDROCHLORIDE
     Indication: Diabetes mellitus
  15. SYNTHROID [Concomitant]
     Active Substance: LEVOTHYROXINE SODIUM
  16. BIOTIN [Concomitant]
     Active Substance: BIOTIN
     Indication: Alopecia
  17. CALCIUM [Concomitant]
     Active Substance: CALCIUM
  18. MIRABEGRON [Concomitant]
     Active Substance: MIRABEGRON
  19. VITAMIN B12 [Concomitant]
     Active Substance: CYANOCOBALAMIN
  20. OMEGA 3 [Concomitant]
     Active Substance: CAPSAICIN
  21. PANTOPRAZOLE [Concomitant]
     Active Substance: PANTOPRAZOLE
  22. CETIRIZINE [Concomitant]
     Active Substance: CETIRIZINE HYDROCHLORIDE
  23. OXYBUTYNIN [Concomitant]
     Active Substance: OXYBUTYNIN
  24. NUTRICAP [Concomitant]
  25. FAMOTIDINE [Concomitant]
     Active Substance: FAMOTIDINE
  26. NITROFURANTOIN [Concomitant]
     Active Substance: NITROFURANTOIN
     Indication: Urinary tract infection
  27. TOVIAZ [Concomitant]
     Active Substance: FESOTERODINE FUMARATE
  28. NORITATE [Concomitant]
     Active Substance: METRONIDAZOLE

REACTIONS (25)
  - Malignant melanoma [Not Recovered/Not Resolved]
  - Infusion related reaction [Recovered/Resolved]
  - Hypersensitivity [Not Recovered/Not Resolved]
  - Gingival pain [Not Recovered/Not Resolved]
  - Skin plaque [Recovered/Resolved]
  - Stress [Recovered/Resolved]
  - Alopecia [Not Recovered/Not Resolved]
  - Gingival bleeding [Not Recovered/Not Resolved]
  - Urinary tract infection [Recovering/Resolving]
  - Acne [Recovered/Resolved]
  - Urinary incontinence [Not Recovered/Not Resolved]
  - Gastric disorder [Not Recovered/Not Resolved]
  - Tinnitus [Not Recovered/Not Resolved]
  - COVID-19 [Not Recovered/Not Resolved]
  - Hypoaesthesia oral [Recovered/Resolved]
  - Taste disorder [Recovered/Resolved]
  - Rebound effect [Unknown]
  - Amnesia [Not Recovered/Not Resolved]
  - Disturbance in attention [Not Recovered/Not Resolved]
  - Hypoaesthesia [Not Recovered/Not Resolved]
  - Mole excision [Unknown]
  - Nasopharyngitis [Recovered/Resolved]
  - Wound [Recovering/Resolving]
  - Erythema [Recovering/Resolving]
  - Rash [Recovering/Resolving]

NARRATIVE: CASE EVENT DATE: 20190611
